FAERS Safety Report 4356856-4 (Version None)
Quarter: 2004Q2

REPORT INFORMATION
  Report Type: 
  Country: None (occurrence: None)
  Receive Date: 20040507
  Receipt Date: 20040422
  Transmission Date: 20050107
  Serious: Yes (Hospitalization)
  Sender: FDA-Public Use
  Company Number: S04-GER-01521-01

PATIENT
  Age: 34 Year
  Sex: Female

DRUGS (4)
  1. CIPRALEX (ESCITALOPRAM) [Suspect]
     Indication: POST-TRAUMATIC STRESS DISORDER
     Dosage: 20 MG QD PO
     Route: 048
  2. TARIVIT (OFLOXACIN) [Suspect]
     Indication: PYELONEPHRITIS
     Dosage: 500 MG BID PO
     Route: 048
  3. METOCLOPRAMIDE [Concomitant]
  4. NOVALDIN INJ [Concomitant]

REACTIONS (3)
  - AGITATION [None]
  - AKATHISIA [None]
  - HYPOAESTHESIA [None]
